FAERS Safety Report 10576842 (Version 1)
Quarter: 2014Q4

REPORT INFORMATION
  Report Type: Spontaneous
  Country: FR (occurrence: FR)
  Receive Date: 20141111
  Receipt Date: 20141111
  Transmission Date: 20150529
  Serious: Yes (Death, Life-Threatening)
  Sender: FDA-Public Use
  Company Number: FR-BRISTOL-MYERS SQUIBB COMPANY-21568647

PATIENT
  Age: 80 Year
  Sex: Female

DRUGS (13)
  1. LORAZEPAM. [Suspect]
     Active Substance: LORAZEPAM
     Route: 048
  2. HEMIGOXINE NATIVELLE [Concomitant]
     Active Substance: DIGOXIN
     Indication: TACHYCARDIA
  3. TRIATEC [Suspect]
     Active Substance: RAMIPRIL
     Indication: HYPERTENSION
     Route: 048
  4. NIFUROXAZIDE [Concomitant]
     Active Substance: NIFUROXAZIDE
  5. DUOPLAVIN [Suspect]
     Active Substance: ASPIRIN\CLOPIDOGREL
     Indication: ACUTE CORONARY SYNDROME
     Route: 048
  6. BISOPROLOL [Suspect]
     Active Substance: BISOPROLOL
     Indication: HYPERTENSION
     Dosage: 1DF = 1 UNIT NOS
     Route: 048
  7. CREON [Suspect]
     Active Substance: PANCRELIPASE AMYLASE\PANCRELIPASE LIPASE\PANCRELIPASE PROTEASE
     Indication: PANCREATITIS
     Dosage: 1DF = 3 UNIT NOS
     Route: 048
  8. LASILIX [Suspect]
     Active Substance: FUROSEMIDE
     Indication: HYPERTENSION
     Route: 048
  9. ESOMEPRAZOLE [Suspect]
     Active Substance: ESOMEPRAZOLE
     Route: 048
  10. TAHOR [Suspect]
     Active Substance: ATORVASTATIN CALCIUM
     Indication: HYPERCHOLESTEROLAEMIA
     Route: 048
  11. EFFERALGAN [Suspect]
     Active Substance: ACETAMINOPHEN
     Dosage: 1DF = 3TO4 UNIT NOS
     Route: 048
  12. METFORMIN HCL [Suspect]
     Active Substance: METFORMIN HYDROCHLORIDE
     Indication: TYPE 2 DIABETES MELLITUS
     Dosage: METFORMIN 850 MG ?1DF = 3 UNIT NOS
     Route: 048
     Dates: start: 1996
  13. CARBIMAZOLE [Suspect]
     Active Substance: CARBIMAZOLE
     Indication: HYPERTHYROIDISM
     Dosage: NEOMERCAZOLE 5 MG ?1DF = 0.5 OR 1
     Route: 048

REACTIONS (13)
  - Acute kidney injury [Fatal]
  - Hyperkalaemia [Fatal]
  - Cell death [None]
  - Cardioactive drug level decreased [None]
  - Hepatic failure [Fatal]
  - Vomiting [Unknown]
  - Overdose [None]
  - Lactic acidosis [Fatal]
  - Diarrhoea [Unknown]
  - Abdominal pain [Unknown]
  - Tachycardia [None]
  - Blood pressure decreased [None]
  - Cardiac failure [None]

NARRATIVE: CASE EVENT DATE: 20141005
